FAERS Safety Report 6479922-6 (Version None)
Quarter: 2009Q4

REPORT INFORMATION
  Report Type: 
  Country: None (occurrence: None)
  Receive Date: 20091208
  Receipt Date: 20091112
  Transmission Date: 20100525
  Serious: Yes (Death)
  Sender: FDA-Public Use
  Company Number: US-SANOFI-AVENTIS-2009SA001761

PATIENT
  Age: 22 Year
  Sex: Male

DRUGS (10)
  1. PLAVIX [Suspect]
     Indication: HEART TRANSPLANT
     Route: 048
     Dates: end: 20091001
  2. LIPITOR [Concomitant]
  3. COUMADIN [Concomitant]
  4. COREG [Concomitant]
  5. CELLCEPT [Concomitant]
  6. RAPAMUNE [Concomitant]
  7. DIOVAN HCT [Concomitant]
  8. PREVACID [Concomitant]
  9. K-DUR [Concomitant]
  10. ACTONEL [Concomitant]

REACTIONS (1)
  - DEATH [None]
